FAERS Safety Report 5467028-4 (Version None)
Quarter: 2007Q3

REPORT INFORMATION
  Report Type: 
  Country: None (occurrence: None)
  Receive Date: 20070925
  Receipt Date: 20070918
  Transmission Date: 20080115
  Serious: Yes (Other)
  Sender: FDA-Public Use
  Company Number: A0683614A

PATIENT
  Age: 55 Year
  Sex: Male

DRUGS (7)
  1. AVANDIA [Suspect]
     Indication: DRUG USE FOR UNKNOWN INDICATION
     Dosage: 4MG PER DAY
     Route: 048
  2. ALTACE [Concomitant]
  3. HYDROCHLOROTHIAZIDE [Concomitant]
  4. LIPITOR [Concomitant]
  5. METFORMIN HCL [Concomitant]
  6. NORVASC [Concomitant]
  7. TAPAZOLE [Concomitant]

REACTIONS (4)
  - BALANCE DISORDER [None]
  - DEREALISATION [None]
  - MEMORY IMPAIRMENT [None]
  - STUPOR [None]
